FAERS Safety Report 17584004 (Version 2)
Quarter: 2021Q4

REPORT INFORMATION
  Report Type: Report from Study
  Country: JP (occurrence: JP)
  Receive Date: 20200326
  Receipt Date: 20211105
  Transmission Date: 20220303
  Serious: Yes (Death, Other)
  Sender: FDA-Public Use
  Company Number: JP-GSKPMS-204524-0113-002

PATIENT
  Age: 8 Decade
  Sex: Female

DRUGS (27)
  1. MEPOLIZUMAB [Suspect]
     Active Substance: MEPOLIZUMAB
     Indication: Asthma
     Dosage: 100 MG
     Route: 058
     Dates: start: 20171226, end: 20171226
  2. MEPOLIZUMAB [Suspect]
     Active Substance: MEPOLIZUMAB
     Dosage: 100 MG
     Route: 058
     Dates: start: 20180123, end: 20180123
  3. MEPOLIZUMAB [Suspect]
     Active Substance: MEPOLIZUMAB
     Dosage: 100 MG
     Route: 058
     Dates: start: 20180220, end: 20180220
  4. MEPOLIZUMAB [Suspect]
     Active Substance: MEPOLIZUMAB
     Dosage: 100 MG
     Route: 058
     Dates: start: 20180320, end: 20180320
  5. CARBOCYSTEINE [Concomitant]
     Active Substance: CARBOCYSTEINE
     Indication: Asthma
     Dosage: UNK
  6. SPIRIVA RESPIMAT [Concomitant]
     Active Substance: TIOTROPIUM BROMIDE
     Indication: Asthma
     Dosage: 5 ?G, 1D
  7. PULMICORT TURBUHALER [Concomitant]
     Active Substance: BUDESONIDE
     Indication: Asthma
     Dosage: 800 ?G, 1D
  8. PREDNISOLONE [Concomitant]
     Active Substance: PREDNISOLONE
     Indication: Asthma
     Dosage: 7.5 MG, 1D
  9. MONTELUKAST OD [Concomitant]
     Indication: Asthma
     Dosage: UNK
  10. HERBALS [Concomitant]
     Active Substance: HERBALS
     Indication: Prophylaxis
     Dosage: UNK
  11. VENETLIN INHALATION [Concomitant]
     Indication: Asthma
     Dosage: UNK
  12. VENETLIN INHALATION [Concomitant]
     Dosage: UNK
     Dates: start: 20180102
  13. VENETLIN INHALATION [Concomitant]
     Dosage: UNK
     Dates: start: 20180210
  14. VENETLIN INHALATION [Concomitant]
     Dosage: UNK
     Dates: start: 20180311
  15. KALLIDINOGENASE [Concomitant]
     Active Substance: KALLIDINOGENASE
     Dosage: UNK
     Route: 048
  16. ALENDRONATE [Concomitant]
     Active Substance: ALENDRONATE SODIUM
     Dosage: UNK
     Route: 048
  17. NIFEDIPINE [Concomitant]
     Active Substance: NIFEDIPINE
     Dosage: UNK
  18. LANSOPRAZOLE-OD TABLETS [Concomitant]
     Indication: Prophylaxis
     Dosage: UNK
  19. BAKTAR COMBINATION GRANULES [Concomitant]
     Indication: Prophylaxis
     Dosage: UNK
     Route: 048
  20. AZILSARTAN KAMEDOXOMIL [Concomitant]
     Active Substance: AZILSARTAN KAMEDOXOMIL
     Dosage: UNK
  21. VILDAGLIPTIN [Concomitant]
     Active Substance: VILDAGLIPTIN
     Dosage: UNK
  22. XYZAL [Concomitant]
     Active Substance: LEVOCETIRIZINE DIHYDROCHLORIDE
     Indication: Asthma
     Dosage: UNK
  23. METHYLPREDNISOLONE [Concomitant]
     Active Substance: METHYLPREDNISOLONE
     Indication: Asthma
     Dosage: UNK
  24. METHYLPREDNISOLONE [Concomitant]
     Active Substance: METHYLPREDNISOLONE
     Dosage: UNK
     Dates: start: 20180210
  25. METHYLPREDNISOLONE [Concomitant]
     Active Substance: METHYLPREDNISOLONE
     Dosage: UNK
     Dates: start: 20180311
  26. NEOPHYLLIN (JAPAN) [Concomitant]
     Indication: Asthma
     Dosage: UNK
     Dates: start: 20180210
  27. NEOPHYLLIN (JAPAN) [Concomitant]
     Indication: Asthma
     Dosage: UNK
     Dates: start: 20180311

REACTIONS (8)
  - Gastric cancer [Fatal]
  - Conjunctivitis allergic [Recovering/Resolving]
  - Rhinitis allergic [Recovering/Resolving]
  - Otorrhoea [Recovered/Resolved]
  - Asthma [Recovering/Resolving]
  - Asthma [Recovering/Resolving]
  - Asthma [Recovering/Resolving]
  - Drug ineffective [Unknown]

NARRATIVE: CASE EVENT DATE: 20180102
